FAERS Safety Report 6046556-7 (Version None)
Quarter: 2009Q1

REPORT INFORMATION
  Report Type: 
  Country: None (occurrence: None)
  Receive Date: 20090122
  Receipt Date: 20090112
  Transmission Date: 20090719
  Serious: Yes (Other)
  Sender: FDA-Public Use
  Company Number: PHHY2008GB32131

PATIENT
  Sex: Male
  Weight: 44.9 kg

DRUGS (1)
  1. EXJADE [Suspect]
     Dosage: 500 MG, QD
     Route: 048
     Dates: start: 20081113

REACTIONS (1)
  - HEADACHE [None]
